FAERS Safety Report 4567068-3 (Version None)
Quarter: 2005Q1

REPORT INFORMATION
  Report Type: 
  Country: None (occurrence: None)
  Receive Date: 20050201
  Receipt Date: 20050121
  Transmission Date: 20050727
  Serious: Yes (Death, Hospitalization)
  Sender: FDA-Public Use
  Company Number: US-ROCHE-393227

PATIENT
  Age: 74 Year
  Sex: Male
  Weight: 72.6 kg

DRUGS (8)
  1. CAPECITABINE [Suspect]
     Dosage: TWO WEEKS TREATMENT FOLLOWED BY ONE WEEK REST.
     Route: 048
     Dates: start: 20041109, end: 20041207
  2. DOCETAXEL [Suspect]
     Dosage: FREQUENCY NOT REPORTED.
     Route: 042
     Dates: start: 20041109
  3. LOVENOX [Concomitant]
     Dosage: ^DAILY^.
     Dates: start: 20040715
  4. PROCRIT [Concomitant]
  5. MARINOL [Concomitant]
     Dates: start: 20041123, end: 20041207
  6. PANCREASE [Concomitant]
     Dates: start: 20041207, end: 20041217
  7. IMODIUM [Concomitant]
     Dosage: P.R.N.
  8. POTASSIUM CHLORIDE [Concomitant]
     Dosage: ^ACCORDING TO LEVELS.^

REACTIONS (6)
  - BUNDLE BRANCH BLOCK [None]
  - COMA [None]
  - DUODENAL ULCER PERFORATION [None]
  - ELECTROCARDIOGRAM ST-T CHANGE [None]
  - NEPHROPATHY TOXIC [None]
  - SINUS TACHYCARDIA [None]
